FAERS Safety Report 10255449 (Version 1)
Quarter: 2014Q2

REPORT INFORMATION
  Report Type: Spontaneous
  Country: PL (occurrence: PL)
  Receive Date: 20140624
  Receipt Date: 20140624
  Transmission Date: 20141212
  Serious: Yes (Death)
  Sender: FDA-Public Use
  Company Number: PHHY2014PL077884

PATIENT
  Age: 75 Year
  Sex: Male

DRUGS (4)
  1. TRAMADOL [Suspect]
     Indication: PAIN
  2. PARACETAMOL [Suspect]
     Indication: PAIN
  3. CODEINE PHOSPHATE [Suspect]
     Indication: PAIN
  4. NSAID^S [Suspect]
     Indication: PAIN

REACTIONS (2)
  - Death [Fatal]
  - Drug ineffective [Unknown]
